FAERS Safety Report 6653892-X (Version None)
Quarter: 2010Q1

REPORT INFORMATION
  Report Type: 
  Country: None (occurrence: None)
  Receive Date: 20100326
  Receipt Date: 20100316
  Transmission Date: 20100710
  Serious: Yes (Hospitalization)
  Sender: FDA-Public Use
  Company Number: JP-ABBOTT-09P-087-0590821-00

PATIENT
  Sex: Male
  Weight: 55 kg

DRUGS (21)
  1. HUMIRA [Suspect]
     Indication: RHEUMATOID ARTHRITIS
     Route: 058
     Dates: start: 20090613, end: 20090725
  2. PREDNISOLONE [Suspect]
     Indication: RHEUMATOID ARTHRITIS
     Route: 048
     Dates: start: 20081115, end: 20090926
  3. NAPROXEN [Suspect]
     Indication: RHEUMATOID ARTHRITIS
     Route: 048
     Dates: start: 20090214, end: 20090926
  4. NAPROXEN [Suspect]
     Indication: BACK PAIN
  5. NAPROXEN [Suspect]
     Indication: CERVICOBRACHIAL SYNDROME
  6. MECOBALAMIN [Concomitant]
     Indication: NEUROPATHY PERIPHERAL
  7. MECOBALAMIN [Concomitant]
     Indication: PROPHYLAXIS
  8. AN EXTRACT FROM INFLAMMATORY RABBIT SKIN INOCULATED BY VACCINIA VIRUS [Concomitant]
     Indication: NEUROPATHY PERIPHERAL
  9. AN EXTRACT FROM INFLAMMATORY RABBIT SKIN INOCULATED BY VACCINIA VIRUS [Concomitant]
     Indication: PROPHYLAXIS
  10. REBAMIPIDE [Concomitant]
     Indication: PROPHYLAXIS
     Route: 048
     Dates: start: 20090502
  11. REBAMIPIDE [Concomitant]
     Indication: GASTRITIS
  12. ISONIAZID [Concomitant]
     Indication: ANTIBIOTIC PROPHYLAXIS
     Route: 048
     Dates: start: 20090608
  13. ZOLPIDEM TARTRATE [Concomitant]
     Indication: PROPHYLAXIS
     Route: 048
     Dates: start: 20090502
  14. ZOLPIDEM TARTRATE [Concomitant]
     Indication: INSOMNIA
  15. SENNOSIDE [Concomitant]
     Indication: CONSTIPATION PROPHYLAXIS
     Route: 048
     Dates: start: 20090502
  16. SENNOSIDE [Concomitant]
  17. GABAPENTIN [Concomitant]
     Indication: PROPHYLAXIS
     Route: 048
     Dates: start: 20090502
  18. GABAPENTIN [Concomitant]
     Indication: EPILEPSY
  19. PREDNISOLONE [Concomitant]
     Route: 048
     Dates: start: 20090214, end: 20090226
  20. NAPROXEN [Concomitant]
     Dates: start: 20090214, end: 20090926
  21. NAPROXEN [Concomitant]

REACTIONS (1)
  - GASTRIC ULCER HAEMORRHAGE [None]
